FAERS Safety Report 16866979 (Version 1)
Quarter: 2019Q3

REPORT INFORMATION
  Report Type: Spontaneous
  Country: ES (occurrence: ES)
  Receive Date: 20190930
  Receipt Date: 20190930
  Transmission Date: 20191005
  Serious: Yes (Other)
  Sender: FDA-Public Use
  Company Number: ES-ADVANZ PHARMA-201909000778

PATIENT

DRUGS (1)
  1. ZONISAMIDE. [Suspect]
     Active Substance: ZONISAMIDE
     Indication: MIGRAINE PROPHYLAXIS
     Dosage: UNK, CAPSULE
     Route: 048

REACTIONS (5)
  - Product use in unapproved indication [Unknown]
  - Suicidal ideation [Recovered/Resolved]
  - Apathy [Recovered/Resolved]
  - Mood altered [Recovered/Resolved]
  - Depression [Recovered/Resolved]
